FAERS Safety Report 4307342-9 (Version None)
Quarter: 2004Q1

REPORT INFORMATION
  Report Type: 
  Country: None (occurrence: None)
  Receive Date: 20040226
  Receipt Date: 20040213
  Transmission Date: 20041129
  Serious: No
  Sender: FDA-Public Use
  Company Number: 04P-163-0250399-00

PATIENT
  Sex: 0

DRUGS (5)
  1. ULTIVA [Suspect]
     Dosage: SEE IMAGE
     Route: 064
  2. THIOPENTAL SODIUM [Concomitant]
  3. SUCCINYLCHOLINE CHLORIDE [Concomitant]
  4. NITROUS OXIDE [Concomitant]
  5. OXYGEN [Concomitant]

REACTIONS (4)
  - HYPERTONIA NEONATAL [None]
  - MATERNAL DRUGS AFFECTING FOETUS [None]
  - NEONATAL APNOEIC ATTACK [None]
  - NEONATAL RESPIRATORY DEPRESSION [None]
